FAERS Safety Report 8836783 (Version 1)
Quarter: 2012Q4

REPORT INFORMATION
  Report Type: 
  Country: US (occurrence: US)
  Receive Date: 20121012
  Receipt Date: 20121012
  Transmission Date: 20130627
  Serious: Yes (Other)
  Sender: FDA-Public Use
  Company Number: US-AMGEN-USASP2012064525

PATIENT
  Sex: Female

DRUGS (2)
  1. ENBREL [Suspect]
     Indication: PSORIASIS
     Dosage: UNK
  2. HUMIRA [Concomitant]
     Indication: PSORIASIS
     Dosage: 40 mg, q2wk
     Route: 058

REACTIONS (2)
  - Pancreatic carcinoma [Unknown]
  - Ovarian cancer [Unknown]
